FAERS Safety Report 5097855-7 (Version None)
Quarter: 2006Q3

REPORT INFORMATION
  Report Type: 
  Country: None (occurrence: None)
  Receive Date: 20060905
  Receipt Date: 20060825
  Transmission Date: 20061208
  Serious: Yes (Death, Hospitalization)
  Sender: FDA-Public Use
  Company Number: DEWYE780525AUG06

PATIENT
  Age: 66 Year
  Sex: Female

DRUGS (3)
  1. GEMTUZUMAB OZOGAMICIN (GEMTUZUMAB OZOGAMICIN, INJECTION) [Suspect]
     Indication: ACUTE MYELOID LEUKAEMIA
     Dosage: 10.5 MG INTRAVENOUS
     Route: 042
     Dates: start: 20060802, end: 20060802
  2. GEMTUZUMAB OZOGAMICIN (GEMTUZUMAB OZOGAMICIN, INJECTION) [Suspect]
     Indication: ACUTE MYELOID LEUKAEMIA
     Dosage: 10.5 MG INTRAVENOUS
     Route: 042
     Dates: start: 20060808, end: 20060808
  3. CYTARABINE [Suspect]
     Indication: ACUTE MYELOID LEUKAEMIA
     Dosage: 175 MG PER DAY INTRAVENOUS
     Route: 042
     Dates: start: 20060801, end: 20060807

REACTIONS (21)
  - ACTIVATED PARTIAL THROMBOPLASTIN TIME PROLONGED [None]
  - ASPARTATE AMINOTRANSFERASE INCREASED [None]
  - BLOOD ALKALINE PHOSPHATASE INCREASED [None]
  - BLOOD BILIRUBIN INCREASED [None]
  - BLOOD CALCIUM DECREASED [None]
  - BLOOD CHLORIDE INCREASED [None]
  - BLOOD FIBRINOGEN INCREASED [None]
  - BLOOD LACTATE DEHYDROGENASE INCREASED [None]
  - BLOOD SODIUM INCREASED [None]
  - BLOOD UREA INCREASED [None]
  - C-REACTIVE PROTEIN INCREASED [None]
  - COLITIS [None]
  - GAMMA-GLUTAMYLTRANSFERASE INCREASED [None]
  - HAEMATOCRIT DECREASED [None]
  - HAEMOGLOBIN DECREASED [None]
  - MULTI-ORGAN FAILURE [None]
  - PERITONITIS [None]
  - PROTEIN TOTAL DECREASED [None]
  - PROTHROMBIN TIME PROLONGED [None]
  - RED BLOOD CELL COUNT DECREASED [None]
  - SEPSIS [None]
